FAERS Safety Report 17213246 (Version 1)
Quarter: 2019Q4

REPORT INFORMATION
  Report Type: Spontaneous
  Country: CN (occurrence: CN)
  Receive Date: 20191230
  Receipt Date: 20191230
  Transmission Date: 20200122
  Serious: Yes (Hospitalization)
  Sender: FDA-Public Use
  Company Number: CN-JNJFOC-20191232500

PATIENT
  Age: 66 Year
  Sex: Male
  Weight: 62.1 kg

DRUGS (30)
  1. FAMOTIDINE. [Concomitant]
     Active Substance: FAMOTIDINE
     Indication: ABDOMINAL DISCOMFORT
  2. TRIAMCINOLONE [Concomitant]
     Active Substance: TRIAMCINOLONE
     Indication: ANGULAR CHEILITIS
  3. CODEINE PHOSPHATE [Concomitant]
     Active Substance: CODEINE PHOSPHATE
     Indication: BACK PAIN
  4. ONDANSETRON [Concomitant]
     Active Substance: ONDANSETRON
     Indication: NAUSEA
  5. EPACADOSTAT [Suspect]
     Active Substance: EPACADOSTAT
     Indication: NON-SMALL CELL LUNG CANCER METASTATIC
     Route: 048
  6. PALONOSETRON HYDROCHLORIDE. [Concomitant]
     Active Substance: PALONOSETRON HYDROCHLORIDE
     Indication: CHEMOTHERAPY
  7. ESOMEPRAZOLE. [Concomitant]
     Active Substance: ESOMEPRAZOLE MAGNESIUM
     Indication: ABDOMINAL DISCOMFORT
  8. LEVOCETIRIZINE [Concomitant]
     Active Substance: LEVOCETIRIZINE
     Indication: PRURITUS
  9. APREPITANT. [Concomitant]
     Active Substance: APREPITANT
     Indication: NAUSEA
  10. TAMSULOSIN HYDROCHLORIDE. [Concomitant]
     Active Substance: TAMSULOSIN HYDROCHLORIDE
     Indication: BENIGN PROSTATIC HYPERPLASIA
  11. BETAMETHASONE W/GENTAMICIN [Concomitant]
     Indication: FOLLICULITIS
  12. DUROGESIC D-TRANS [Suspect]
     Active Substance: FENTANYL
     Indication: BACK PAIN
     Dosage: TOTAL DAILY DOSE-1 PATCH
     Route: 061
  13. OXYCODONE HYDROCHLORIDE. [Concomitant]
     Active Substance: OXYCODONE HYDROCHLORIDE
     Indication: CHEST PAIN
  14. METOCLOPRAMIDE. [Concomitant]
     Active Substance: METOCLOPRAMIDE
     Indication: NAUSEA
  15. PACLITAXEL. [Suspect]
     Active Substance: PACLITAXEL
     Indication: NON-SMALL CELL LUNG CANCER METASTATIC
     Dosage: 175-200 MG/M2, FOR 4 CYCLES
     Route: 042
  16. DEXAMETHASONE. [Concomitant]
     Active Substance: DEXAMETHASONE
     Indication: MALIGNANT NEOPLASM PROGRESSION
     Dosage: 21 MINUTES
     Route: 065
  17. CLINDAMYCIN PHOSPHATE. [Concomitant]
     Active Substance: CLINDAMYCIN PHOSPHATE
     Indication: FOLLICULITIS
  18. SODIUM CHLORIDE. [Concomitant]
     Active Substance: SODIUM CHLORIDE
     Indication: NAUSEA
  19. METOCLOPRAMIDE. [Concomitant]
     Active Substance: METOCLOPRAMIDE
     Indication: DIZZINESS
  20. PEMBROLIZUMAB. [Suspect]
     Active Substance: PEMBROLIZUMAB
     Indication: NON-SMALL CELL LUNG CANCER METASTATIC
     Route: 042
     Dates: start: 20180521, end: 20180521
  21. CARBOPLATIN. [Suspect]
     Active Substance: CARBOPLATIN
     Indication: NON-SMALL CELL LUNG CANCER METASTATIC
     Dosage: FOR 4 CYCLES
     Route: 042
  22. HYDROXYZINE HYDROCHLORIDE. [Concomitant]
     Active Substance: HYDROXYZINE HYDROCHLORIDE
     Indication: PRURITUS
  23. NEOMYCIN SULFATE W/TYROTHRICIN [Concomitant]
     Indication: FOLLICULITIS
  24. ULTRACET [Concomitant]
     Active Substance: ACETAMINOPHEN\TRAMADOL HYDROCHLORIDE
     Indication: BACK PAIN
  25. APREPITANT. [Concomitant]
     Active Substance: APREPITANT
     Indication: VOMITING
  26. ONDANSETRON [Concomitant]
     Active Substance: ONDANSETRON
     Indication: VOMITING
  27. CIMETIDINE [Concomitant]
     Active Substance: CIMETIDINE
     Indication: CHEMOTHERAPY
     Dates: start: 20180521, end: 20180521
  28. DIPHENHYDRAMINE. [Concomitant]
     Active Substance: DIPHENHYDRAMINE
     Indication: CHEMOTHERAPY
     Route: 065
  29. ACECLOFENAC [Concomitant]
     Active Substance: ACECLOFENAC
     Indication: BACK PAIN
  30. SODIUM CHLORIDE. [Concomitant]
     Active Substance: SODIUM CHLORIDE
     Indication: DYSPNOEA

REACTIONS (2)
  - Pleural effusion [Unknown]
  - Abdominal pain upper [Recovered/Resolved]

NARRATIVE: CASE EVENT DATE: 20180524
